FAERS Safety Report 7092876-7 (Version None)
Quarter: 2010Q4

REPORT INFORMATION
  Report Type: 
  Country: None (occurrence: None)
  Receive Date: 20101110
  Receipt Date: 20101102
  Transmission Date: 20110411
  Serious: No
  Sender: FDA-Public Use
  Company Number: US-PFIZER INC-2010140060

PATIENT
  Sex: Female
  Weight: 50 kg

DRUGS (4)
  1. LIPITOR [Suspect]
     Indication: BLOOD CHOLESTEROL INCREASED
     Dosage: 20 MG, 1X/DAY
     Route: 048
     Dates: start: 20080101, end: 20101101
  2. COZAAR [Concomitant]
     Indication: BLOOD CHOLESTEROL ABNORMAL
     Dosage: 50 MG, 2X/DAY
     Route: 048
  3. AMARYL [Concomitant]
     Indication: DIABETES MELLITUS
     Dosage: 2 MG, AS NEEDED
     Route: 048
  4. TYLENOL [Concomitant]
     Indication: ARTHRITIS
     Dosage: UNK

REACTIONS (2)
  - DRY MOUTH [None]
  - ORAL DISORDER [None]
